FAERS Safety Report 5328249-4 (Version None)
Quarter: 2007Q2

REPORT INFORMATION
  Report Type: 
  Country: None (occurrence: None)
  Receive Date: 20070515
  Receipt Date: 20070515
  Transmission Date: 20071010
  Serious: Yes (Life-Threatening, Hospitalization)
  Sender: FDA-Public Use
  Company Number: None

PATIENT
  Sex: Male
  Weight: 93 kg

DRUGS (2)
  1. HEPARIN [Suspect]
     Indication: THROMBOSIS PROPHYLAXIS
     Dosage: 5000 UNITS TID (SC)
     Route: 058
     Dates: start: 20070321, end: 20070325
  2. RICE CHEMOTHERAPY REGIMEN [Concomitant]

REACTIONS (1)
  - PLATELET COUNT DECREASED [None]
